FAERS Safety Report 5679058-8 (Version None)
Quarter: 2008Q1

REPORT INFORMATION
  Report Type: 
  Country: None (occurrence: None)
  Receive Date: 20080325
  Receipt Date: 20080313
  Transmission Date: 20080703
  Serious: Yes (Hospitalization, Other)
  Sender: FDA-Public Use
  Company Number: HQWYE904227JAN05

PATIENT
  Sex: Female

DRUGS (4)
  1. PREMARIN [Suspect]
     Dosage: UNKNOWN
     Route: 048
     Dates: start: 19860401, end: 19860923
  2. ESTRADERM [Suspect]
     Dosage: PATCHES, DOSE UNKNOWN
     Dates: start: 19900620, end: 20000204
  3. ESTROPIPATE [Suspect]
  4. DEPO-ESTRADIOL [Suspect]
     Dosage: INJECTIONS; DOSE UNKNOWN
     Dates: start: 19870224, end: 19900620

REACTIONS (2)
  - BREAST CANCER [None]
  - ENDOMETRIOSIS [None]
